FAERS Safety Report 6610127-1 (Version None)
Quarter: 2010Q1

REPORT INFORMATION
  Report Type: 
  Country: None (occurrence: None)
  Receive Date: 20100216
  Receipt Date: 20090513
  Transmission Date: 20100710
  Serious: Yes (Hospitalization, Other)
  Sender: FDA-Public Use
  Company Number: MC200900111

PATIENT
  Age: 64 Year
  Sex: Male
  Weight: 95.9 kg

DRUGS (12)
  1. ANGIOMAX [Suspect]
     Indication: PERCUTANEOUS CORONARY INTERVENTION
     Dosage: 14.3 ML, BOLUS, INTRAVENOUS : 33.3 ML, HR
     Route: 040
     Dates: start: 20090319, end: 20090319
  2. ANGIOMAX [Suspect]
     Indication: PERCUTANEOUS CORONARY INTERVENTION
     Dosage: 14.3 ML, BOLUS, INTRAVENOUS : 33.3 ML, HR
     Route: 040
     Dates: start: 20090319, end: 20090319
  3. VISIPAQUE [Concomitant]
  4. SODIUM CHLORIDE [Concomitant]
  5. LIDOCAINE [Concomitant]
  6. NITROGLYCERIN [Concomitant]
  7. FENTANYL-100 [Concomitant]
  8. VERSED (MDAZOLAM HYDROCHLORIDE) [Concomitant]
  9. VERAPAMIL [Concomitant]
  10. LOPRESSOR [Concomitant]
  11. POTASSIUM CHLORIDE [Concomitant]
  12. ADENOSINE [Concomitant]

REACTIONS (2)
  - COAGULATION TIME ABNORMAL [None]
  - THROMBOSIS [None]
